FAERS Safety Report 9083577 (Version 1)
Quarter: 2013Q1

REPORT INFORMATION
  Report Type: Report from Study
  Country: US (occurrence: US)
  Receive Date: 20130130
  Receipt Date: 20130130
  Transmission Date: 20140127
  Serious: No
  Sender: FDA-Public Use
  Company Number: US-ABBOTT-12P-163-0981105-00

PATIENT
  Age: 48 Year
  Sex: Male

DRUGS (3)
  1. HUMIRA [Suspect]
     Indication: ANKYLOSING SPONDYLITIS
  2. LISINOPRIL [Concomitant]
     Indication: PRODUCT USED FOR UNKNOWN INDICATION
     Dosage: 10MG DAILY
  3. FENOFIBRATE [Concomitant]
     Indication: PRODUCT USED FOR UNKNOWN INDICATION
     Dosage: 160MG DAILY

REACTIONS (1)
  - Incorrect dose administered [Not Recovered/Not Resolved]
